FAERS Safety Report 8599209-5 (Version None)
Quarter: 2012Q3

REPORT INFORMATION
  Report Type: 
  Country: None (occurrence: None)
  Receive Date: 20120816
  Receipt Date: 20110822
  Transmission Date: 20120928
  Serious: No
  Sender: FDA-Public Use
  Company Number: US-AMGEN-USASP2011043187

PATIENT
  Age: 58 Year
  Sex: Female

DRUGS (1)
  1. NEUPOGEN [Suspect]
     Indication: IDIOPATHIC NEUTROPENIA
     Dosage: 480 MUG, QWK
     Dates: start: 20010801

REACTIONS (2)
  - NEUTROPHIL COUNT DECREASED [None]
  - INAPPROPRIATE SCHEDULE OF DRUG ADMINISTRATION [None]
